FAERS Safety Report 8242770-0 (Version None)
Quarter: 2012Q1

REPORT INFORMATION
  Report Type: 
  Country: None (occurrence: None)
  Receive Date: 20120329
  Receipt Date: 20120322
  Transmission Date: 20120608
  Serious: Yes (Hospitalization, Other)
  Sender: FDA-Public Use
  Company Number: US-BAYER-2011-017061

PATIENT
  Age: 43 Year
  Sex: Female
  Weight: 58.957 kg

DRUGS (5)
  1. CELEXA [Concomitant]
     Indication: DEPRESSION
     Dosage: UNK
     Dates: start: 19800101
  2. XANAX [Concomitant]
  3. YASMIN [Suspect]
     Indication: PRODUCT USED FOR UNKNOWN INDICATION
     Dosage: UNK
     Dates: start: 20020226, end: 20020603
  4. IBUPROFEN [Concomitant]
     Dosage: UNK UNK, PRN
     Dates: start: 20000101
  5. IBUPROFEN [Concomitant]
     Dosage: UNK
     Dates: start: 20020502

REACTIONS (6)
  - PELVIC VENOUS THROMBOSIS [None]
  - PLEURAL EFFUSION [None]
  - PLEURITIC PAIN [None]
  - PULMONARY EMBOLISM [None]
  - PLEURISY [None]
  - INJURY [None]
